FAERS Safety Report 21972282 (Version 1)
Quarter: 2023Q1

REPORT INFORMATION
  Report Type: Spontaneous
  Country: US (occurrence: None)
  Receive Date: 20230207
  Receipt Date: 20230207
  Transmission Date: 20230418
  Serious: Yes (Life-Threatening, Disabling)
  Sender: FDA-Public Use
  Company Number: None

PATIENT
  Age: 21 Year
  Sex: Male
  Weight: 69.3 kg

DRUGS (2)
  1. FINASTERIDE 0.1% / MINOXIDIL 5% [Suspect]
     Active Substance: FINASTERIDE\MINOXIDIL
     Indication: Androgenetic alopecia
     Dates: start: 20221025, end: 20221028
  2. ZOLOFT [Concomitant]
     Active Substance: SERTRALINE HYDROCHLORIDE

REACTIONS (9)
  - Penile pain [None]
  - Testicular pain [None]
  - Sexual dysfunction [None]
  - Loss of libido [None]
  - Testicular failure [None]
  - Erectile dysfunction [None]
  - Anxiety [None]
  - Depression [None]
  - Cognitive disorder [None]

NARRATIVE: CASE EVENT DATE: 20221025
